FAERS Safety Report 9104223 (Version 2)
Quarter: 2013Q4

REPORT INFORMATION
  Report Type: Spontaneous
  Country: FR (occurrence: FR)
  Receive Date: 20130219
  Receipt Date: 20131206
  Transmission Date: 20140711
  Serious: Yes (Other)
  Sender: FDA-Public Use
  Company Number: FR-PFIZER INC-2013058555

PATIENT
  Age: 78 Year
  Sex: Male

DRUGS (4)
  1. NEURONTIN [Suspect]
     Dosage: 400 MG, 2X/DAY
     Route: 048
     Dates: start: 20120828
  2. TERCIAN [Suspect]
     Dosage: 30 GTT, 1X/DAY
     Route: 048
     Dates: start: 2012
  3. TERCIAN [Suspect]
     Dosage: 10 GTT, EVERY 15 DAYS
  4. SERESTA [Concomitant]
     Dosage: 10 MG, 1X/DAY

REACTIONS (2)
  - Bradyphrenia [Recovering/Resolving]
  - Extrapyramidal disorder [Unknown]
